FAERS Safety Report 10697287 (Version 1)
Quarter: 2014Q4

REPORT INFORMATION
  Report Type: Spontaneous
  Country: ES (occurrence: None)
  Receive Date: 20141217
  Receipt Date: 20141217
  Transmission Date: 20150529
  Serious: Yes (Other)
  Sender: FDA-Public Use
  Company Number: 2014-ES-011117

PATIENT
  Sex: Female

DRUGS (2)
  1. ERWINASE [Suspect]
     Active Substance: ASPARAGINASE ERWINIA CHRYSANTHEMI
     Indication: B PRECURSOR TYPE ACUTE LEUKAEMIA
     Dosage: 20000 U, UNK, INTRAMUSCULAR
     Dates: start: 201407
  2. ERWINASE [Suspect]
     Active Substance: ASPARAGINASE ERWINIA CHRYSANTHEMI
     Indication: PRECURSOR B-LYMPHOBLASTIC LYMPHOMA RECURRENT
     Dosage: 20000 U, UNK, INTRAMUSCULAR
     Dates: start: 201407

REACTIONS (2)
  - Precursor B-lymphoblastic lymphoma recurrent [None]
  - Pancreatitis [None]

NARRATIVE: CASE EVENT DATE: 20140801
